FAERS Safety Report 23602183 (Version 1)
Quarter: 2024Q1

REPORT INFORMATION
  Report Type: Spontaneous
  Country: US (occurrence: None)
  Receive Date: 20240306
  Receipt Date: 20240306
  Transmission Date: 20240409
  Serious: No
  Sender: FDA-Public Use
  Company Number: None

PATIENT
  Sex: Female

DRUGS (1)
  1. PROLIA [Suspect]
     Active Substance: DENOSUMAB
     Indication: Senile osteoporosis
     Dosage: 60MG EVERY 6 MONTHS UNDER THE SKIN?
     Route: 058
     Dates: start: 202108

REACTIONS (3)
  - Neck pain [None]
  - Muscle spasms [None]
  - Myalgia [None]
